FAERS Safety Report 12424095 (Version 2)
Quarter: 2017Q2

REPORT INFORMATION
  Report Type: Spontaneous
  Country: US (occurrence: US)
  Receive Date: 20160601
  Receipt Date: 20170602
  Transmission Date: 20170830
  Serious: No
  Sender: FDA-Public Use
  Company Number: US-NOVEN PHARMACEUTICALS, INC.-US2016000443

PATIENT

DRUGS (2)
  1. DAYTRANA [Suspect]
     Active Substance: METHYLPHENIDATE
     Indication: ATTENTION DEFICIT/HYPERACTIVITY DISORDER
     Dosage: 10 MG, UNKNOWN
     Route: 062
     Dates: start: 2016, end: 2016
  2. DAYTRANA [Suspect]
     Active Substance: METHYLPHENIDATE
     Dosage: 10 MG, UNK
     Route: 062
     Dates: start: 20160420, end: 201604

REACTIONS (8)
  - Drug dose omission [Not Recovered/Not Resolved]
  - Product quality issue [Unknown]
  - Swelling [Unknown]
  - Rash [Unknown]
  - Application site pain [Unknown]
  - Application site swelling [Unknown]
  - Application site vesicles [Unknown]
  - Application site erythema [Unknown]

NARRATIVE: CASE EVENT DATE: 201604
